FAERS Safety Report 10371925 (Version 8)
Quarter: 2015Q3

REPORT INFORMATION
  Report Type: Report from Study
  Country: US (occurrence: US)
  Receive Date: 20140808
  Receipt Date: 20150916
  Transmission Date: 20151125
  Serious: Yes (Other)
  Sender: FDA-Public Use
  Company Number: US-SA-2014SA087618

PATIENT
  Age: 54 Year
  Sex: Female

DRUGS (5)
  1. AUBAGIO [Suspect]
     Active Substance: TERIFLUNOMIDE
     Indication: MULTIPLE SCLEROSIS
     Route: 048
     Dates: start: 20140610
  2. AUBAGIO [Suspect]
     Active Substance: TERIFLUNOMIDE
     Indication: MULTIPLE SCLEROSIS
     Route: 048
     Dates: start: 20141110
  3. AUBAGIO [Suspect]
     Active Substance: TERIFLUNOMIDE
     Indication: MULTIPLE SCLEROSIS
     Route: 048
     Dates: start: 20140901, end: 20141101
  4. CRESTOR [Concomitant]
     Active Substance: ROSUVASTATIN CALCIUM
  5. VITAMIN D [Concomitant]
     Active Substance: CHOLECALCIFEROL

REACTIONS (13)
  - White blood cell count increased [Unknown]
  - Productive cough [Unknown]
  - Drug dose omission [Unknown]
  - Walking aid user [Unknown]
  - Fatigue [Unknown]
  - Nausea [Recovered/Resolved]
  - Nasopharyngitis [Unknown]
  - Alopecia [Unknown]
  - Sinusitis [Unknown]
  - Aphonia [Unknown]
  - Nasal congestion [Unknown]
  - Malaise [Unknown]
  - Renal function test abnormal [Unknown]

NARRATIVE: CASE EVENT DATE: 2014
